FAERS Safety Report 8313821-X (Version None)
Quarter: 2012Q2

REPORT INFORMATION
  Report Type: 
  Country: None (occurrence: None)
  Receive Date: 20120426
  Receipt Date: 20120416
  Transmission Date: 20120825
  Serious: Yes (Hospitalization)
  Sender: FDA-Public Use
  Company Number: CA-JNJFOC-20120408391

PATIENT
  Sex: Male

DRUGS (2)
  1. ANTIBIOTICS UNSPECIFIED [Concomitant]
     Route: 065
  2. REMICADE [Suspect]
     Indication: CROHN'S DISEASE
     Route: 042
     Dates: start: 20080201

REACTIONS (1)
  - HOSPITALISATION [None]
